FAERS Safety Report 10205093 (Version 1)
Quarter: 2014Q2

REPORT INFORMATION
  Report Type: Spontaneous
  Country: ID (occurrence: ID)
  Receive Date: 20140529
  Receipt Date: 20140529
  Transmission Date: 20141212
  Serious: Yes (Hospitalization, Other)
  Sender: FDA-Public Use
  Company Number: ID-009507513-1405IDN014830

PATIENT
  Sex: Female

DRUGS (1)
  1. IMPLANON [Suspect]
     Dosage: UNK
     Route: 059
     Dates: end: 2014

REACTIONS (3)
  - Lung operation [Unknown]
  - Dyspnoea [Unknown]
  - Device dislocation [Recovered/Resolved]
